FAERS Safety Report 4882367-3 (Version None)
Quarter: 2006Q1

REPORT INFORMATION
  Report Type: 
  Country: None (occurrence: None)
  Receive Date: 20060117
  Receipt Date: 20051208
  Transmission Date: 20060701
  Serious: Yes (Hospitalization)
  Sender: FDA-Public Use
  Company Number: FR-ROCHE-428002

PATIENT
  Age: 39 Year
  Sex: Male

DRUGS (1)
  1. ROACCUTANE [Suspect]
     Indication: DRUG USE FOR UNKNOWN INDICATION
     Route: 048
     Dates: end: 20051112

REACTIONS (12)
  - CHORIORETINITIS [None]
  - CONJUNCTIVAL DISORDER [None]
  - HEADACHE [None]
  - INFLAMMATION [None]
  - NYSTAGMUS [None]
  - OEDEMA [None]
  - PAPILLOEDEMA [None]
  - PYREXIA [None]
  - URINE ELECTROPHORESIS ABNORMAL [None]
  - VISION BLURRED [None]
  - VISUAL ACUITY REDUCED [None]
  - VOMITING [None]
